FAERS Safety Report 14730644 (Version 2)
Quarter: 2018Q2

REPORT INFORMATION
  Report Type: Spontaneous
  Country: GB (occurrence: GB)
  Receive Date: 20180406
  Receipt Date: 20180416
  Transmission Date: 20180711
  Serious: Yes (Death, Hospitalization)
  Sender: FDA-Public Use
  Company Number: PHHY2018GB060430

PATIENT
  Sex: Male

DRUGS (1)
  1. IMATINIB [Suspect]
     Active Substance: IMATINIB
     Indication: GRAFT VERSUS HOST DISEASE
     Dosage: UNK
     Route: 065
     Dates: start: 20160802

REACTIONS (7)
  - Gastrointestinal disorder [Unknown]
  - Somnolence [Unknown]
  - Diarrhoea [Recovered/Resolved]
  - Sepsis [Fatal]
  - Hypotension [Unknown]
  - Product use in unapproved indication [Unknown]
  - Cardiac arrest [Unknown]
